FAERS Safety Report 5262221-8 (Version None)
Quarter: 2007Q1

REPORT INFORMATION
  Report Type: 
  Country: None (occurrence: None)
  Receive Date: 20070312
  Receipt Date: 20070306
  Transmission Date: 20070707
  Serious: Yes (Death, Disabling)
  Sender: FDA-Public Use
  Company Number: PHHO2006DE17567

PATIENT
  Age: 82 Year
  Sex: Male

DRUGS (7)
  1. DECORTIN [Concomitant]
     Indication: HAEMOLYSIS
     Dosage: 20 MG, UNK
     Dates: start: 20060613
  2. OXYBUTYNIN [Concomitant]
     Indication: INCONTINENCE
     Dosage: UNK, UNK
     Dates: start: 20060101
  3. DICLAC [Concomitant]
     Indication: BACK PAIN
     Dosage: UNK, UNK
     Dates: start: 20060608
  4. BLOOD AND RELATED PRODUCTS [Concomitant]
  5. EXJADE [Suspect]
     Indication: BLOOD IRON INCREASED
     Dosage: 1500 MG, QD
     Route: 048
     Dates: start: 20060329, end: 20060621
  6. EXJADE [Suspect]
     Dosage: NO TREATMENT
     Dates: start: 20060622, end: 20060622
  7. EXJADE [Suspect]
     Dosage: 1000 MG, QD
     Route: 048
     Dates: start: 20060623, end: 20060706

REACTIONS (5)
  - COGNITIVE DISORDER [None]
  - CONFUSIONAL STATE [None]
  - DEATH [None]
  - DEMENTIA [None]
  - IMPAIRED SELF-CARE [None]
